FAERS Safety Report 10517078 (Version 1)
Quarter: 2014Q4

REPORT INFORMATION
  Report Type: Spontaneous
  Country: CA (occurrence: CA)
  Receive Date: 20141014
  Receipt Date: 20141014
  Transmission Date: 20150528
  Serious: Yes (Hospitalization)
  Sender: FDA-Public Use
  Company Number: CA-SYMPLMED PHARMACEUTICALS-2014SYM00118

PATIENT
  Age: 91 Year
  Sex: Female
  Weight: 57.14 kg

DRUGS (1)
  1. ACEON [Suspect]
     Active Substance: PERINDOPRIL ERBUMINE
     Indication: HYPERTENSION
     Dosage: 8 MG, QD
     Route: 048
     Dates: start: 20130509, end: 201306

REACTIONS (2)
  - Cerebrovascular accident [Unknown]
  - Drug ineffective [Unknown]

NARRATIVE: CASE EVENT DATE: 201306
